FAERS Safety Report 11006658 (Version 1)
Quarter: 2015Q2

REPORT INFORMATION
  Report Type: Spontaneous
  Country: US (occurrence: US)
  Receive Date: 20150409
  Receipt Date: 20150409
  Transmission Date: 20150821
  Serious: No
  Sender: FDA-Public Use
  Company Number: US-ALLERGAN-1422672US

PATIENT
  Age: 42 Year
  Sex: Female

DRUGS (3)
  1. MULTIVITAMIN [Concomitant]
     Active Substance: VITAMINS
     Dosage: UNK
     Route: 048
  2. LATISSE [Suspect]
     Active Substance: BIMATOPROST
     Indication: GROWTH OF EYELASHES
     Dosage: 2 GTT, UNK
     Route: 061
  3. LATISSE [Suspect]
     Active Substance: BIMATOPROST
     Dosage: 2 GTT, UNK
     Route: 061

REACTIONS (1)
  - Drug ineffective [Unknown]
